FAERS Safety Report 15434871 (Version 1)
Quarter: 2018Q3

REPORT INFORMATION
  Report Type: Report from Study
  Country: BR (occurrence: BR)
  Receive Date: 20180927
  Receipt Date: 20180927
  Transmission Date: 20181010
  Serious: Yes (Other)
  Sender: FDA-Public Use
  Company Number: PHHY2017BR078749

PATIENT
  Sex: Female
  Weight: 55 kg

DRUGS (3)
  1. ACLASTA [Suspect]
     Active Substance: ZOLEDRONIC ACID
     Indication: OSTEOPOROSIS
     Dosage: 1 DF (5MG/100ML), Q12MO
     Route: 042
     Dates: start: 2016
  2. ACLASTA [Suspect]
     Active Substance: ZOLEDRONIC ACID
     Dosage: 1 DF, Q12MO
     Route: 042
     Dates: start: 201808
  3. ACLASTA [Suspect]
     Active Substance: ZOLEDRONIC ACID
     Indication: OSTEOPENIA
     Dosage: 1 DF (5MG/100ML), Q12MO
     Route: 042
     Dates: start: 201705

REACTIONS (7)
  - Myalgia [Recovering/Resolving]
  - Dizziness [Recovering/Resolving]
  - Retching [Recovering/Resolving]
  - Multiple fractures [Recovering/Resolving]
  - Pain [Recovering/Resolving]
  - Body height decreased [Unknown]
  - Chills [Recovering/Resolving]
